FAERS Safety Report 9658114 (Version 1)
Quarter: 2013Q4

REPORT INFORMATION
  Report Type: Spontaneous
  Country: US (occurrence: US)
  Receive Date: 20131030
  Receipt Date: 20131030
  Transmission Date: 20140711
  Serious: Yes (Other)
  Sender: FDA-Public Use
  Company Number: US-ALLERGAN-1316735US

PATIENT
  Sex: Male

DRUGS (1)
  1. BOTOX [Suspect]
     Indication: OESOPHAGEAL ACHALASIA
     Dosage: 5.6 UNITS PER KG
     Route: 030

REACTIONS (3)
  - Aspiration tracheal [Recovered/Resolved]
  - Oesophageal achalasia [Recovered/Resolved]
  - Off label use [Unknown]
